FAERS Safety Report 10164126 (Version 2)
Quarter: 2014Q2

REPORT INFORMATION
  Report Type: Spontaneous
  Country: US (occurrence: US)
  Receive Date: 20140510
  Receipt Date: 20140510
  Transmission Date: 20141212
  Serious: No
  Sender: FDA-Public Use
  Company Number: US-BRISTOL-MYERS SQUIBB COMPANY-19447788

PATIENT
  Age: 73 Year
  Sex: Female
  Weight: 127.89 kg

DRUGS (2)
  1. BYDUREON  2MG SUSPENSION [Suspect]
     Indication: TYPE 2 DIABETES MELLITUS
     Dosage: NO OF DOSES:13
     Route: 058
     Dates: start: 20130826
  2. BYETTA [Suspect]
     Indication: TYPE 2 DIABETES MELLITUS

REACTIONS (14)
  - Diarrhoea [Unknown]
  - Constipation [Unknown]
  - Decreased appetite [Unknown]
  - Blood glucose increased [Unknown]
  - Nausea [Unknown]
  - Drug dose omission [Unknown]
  - Pain [Unknown]
  - Restlessness [Unknown]
  - Sleep disorder [Unknown]
  - Gastrooesophageal reflux disease [Unknown]
  - Injection site swelling [Unknown]
  - Influenza like illness [Unknown]
  - Injection site pruritus [Unknown]
  - Vomiting [Unknown]
